FAERS Safety Report 4948005-6 (Version None)
Quarter: 2006Q1

REPORT INFORMATION
  Report Type: 
  Country: None (occurrence: None)
  Receive Date: 20060320
  Receipt Date: 20051207
  Transmission Date: 20060701
  Serious: Yes (Hospitalization, Disabling)
  Sender: FDA-Public Use
  Company Number: US-MERCK-0512USA01111

PATIENT
  Age: 48 Year
  Sex: Female
  Weight: 93 kg

DRUGS (22)
  1. VIOXX [Suspect]
     Indication: POLYARTHRITIS
     Route: 048
     Dates: start: 20010525, end: 20040120
  2. VIOXX [Suspect]
     Indication: ARTHRALGIA
     Route: 048
     Dates: start: 20010525, end: 20040120
  3. OXYCONTIN [Concomitant]
     Route: 065
     Dates: start: 20010807, end: 20010830
  4. PREDNISONE [Concomitant]
     Route: 065
  5. SYNTHROID [Concomitant]
     Route: 065
  6. HYDROCODONE BITARTRATE [Concomitant]
     Route: 065
  7. TRAZODONE HYDROCHLORIDE [Concomitant]
     Route: 065
     Dates: start: 19990306, end: 20021201
  8. PAXIL [Concomitant]
     Route: 065
  9. WELLBUTRIN [Concomitant]
     Route: 065
  10. PLAQUENIL [Concomitant]
     Route: 065
  11. NORVASC [Concomitant]
     Indication: HYPERTENSION
     Route: 065
     Dates: start: 20010801
  12. PROCARDIA [Concomitant]
     Indication: HYPERTENSION
     Route: 065
     Dates: start: 20010803, end: 20011120
  13. ASPIRIN [Concomitant]
     Indication: CHEST PAIN
     Route: 065
     Dates: start: 20030920
  14. ZOCOR [Concomitant]
     Indication: HYPERLIPIDAEMIA
     Route: 065
     Dates: start: 20030920
  15. BUPROPION HYDROCHLORIDE [Concomitant]
     Indication: EX-SMOKER
     Route: 065
     Dates: start: 20010820, end: 20021025
  16. ACETAMINOPHEN AND HYDROCODONE BITARTRATE [Concomitant]
     Route: 065
     Dates: start: 20010821, end: 20010919
  17. ACETAMINOPHEN AND CODEINE PHOSPHATE [Concomitant]
     Route: 065
     Dates: start: 20010718, end: 20010723
  18. ENDOCET [Concomitant]
     Route: 065
     Dates: start: 20010802, end: 20010805
  19. ENDOCET [Concomitant]
     Route: 065
     Dates: start: 20010806, end: 20010809
  20. [THERAPY UNSPECIFIED] [Concomitant]
     Indication: HEADACHE
     Route: 065
     Dates: start: 20031126, end: 20031129
  21. CYCLOBENZAPRINE HYDROCHLORIDE [Concomitant]
     Indication: PAIN
     Route: 065
     Dates: start: 20031209
  22. CYCLOBENZAPRINE HYDROCHLORIDE [Concomitant]
     Route: 065
     Dates: start: 20040106, end: 20040111

REACTIONS (21)
  - ANXIETY [None]
  - CEREBROVASCULAR ACCIDENT [None]
  - CHEST PAIN [None]
  - DEPRESSION [None]
  - DIZZINESS [None]
  - DRUG HYPERSENSITIVITY [None]
  - HEADACHE [None]
  - HYPERLIPIDAEMIA [None]
  - HYPERTENSION [None]
  - HYPOAESTHESIA [None]
  - HYPOTHYROIDISM [None]
  - MUSCLE SPASMS [None]
  - MUSCULOSKELETAL DISCOMFORT [None]
  - MYALGIA [None]
  - MYOSITIS [None]
  - OBSTRUCTION [None]
  - RENAL VESSEL DISORDER [None]
  - SYNCOPE [None]
  - UPPER RESPIRATORY TRACT INFECTION [None]
  - VASCULAR OCCLUSION [None]
  - VOMITING [None]
